FAERS Safety Report 9404025 (Version 1)
Quarter: 2013Q3

REPORT INFORMATION
  Report Type: Report from Study
  Country: CA (occurrence: CA)
  Receive Date: 20130717
  Receipt Date: 20130717
  Transmission Date: 20140515
  Serious: Yes (Other)
  Sender: FDA-Public Use
  Company Number: CA-JNJFOC-20130706758

PATIENT
  Age: 58 Year
  Sex: Female
  Weight: 63 kg

DRUGS (11)
  1. REMICADE [Suspect]
     Indication: RHEUMATOID ARTHRITIS
     Dosage: 52ND INFUSION
     Route: 042
     Dates: start: 20130708
  2. REMICADE [Suspect]
     Indication: RHEUMATOID ARTHRITIS
     Route: 042
     Dates: start: 200506
  3. DIDROCAL [Concomitant]
     Indication: BONE DISORDER
     Route: 065
  4. ELTROXIN [Concomitant]
     Indication: HYPOTHYROIDISM
     Route: 065
  5. OMEGA 3-6-9 [Concomitant]
     Indication: GENERAL PHYSICAL CONDITION
     Dosage: FATTY OILS FOR HEALTH
     Route: 065
  6. ARAVA [Concomitant]
     Indication: RHEUMATOID ARTHRITIS
     Route: 065
  7. ASPIRIN [Concomitant]
     Indication: ANTICOAGULANT THERAPY
     Route: 065
  8. MULTIVITAMINS [Concomitant]
     Indication: MEDICAL DIET
     Route: 065
  9. MULTIVITAMINS [Concomitant]
     Indication: GENERAL PHYSICAL CONDITION
     Route: 065
  10. VITAMIN D [Concomitant]
     Indication: MEDICAL DIET
     Route: 065
  11. VITAMIN D [Concomitant]
     Indication: GENERAL PHYSICAL CONDITION
     Route: 065

REACTIONS (3)
  - Odynophagia [Recovering/Resolving]
  - Foreign body [Recovering/Resolving]
  - Choking [Recovering/Resolving]
